FAERS Safety Report 8890018 (Version 1)
Quarter: 2012Q4

REPORT INFORMATION
  Report Type: Spontaneous
  Country: US (occurrence: None)
  Receive Date: 20121102
  Receipt Date: 20121102
  Transmission Date: 20130627
  Serious: Yes (Other)
  Sender: FDA-Public Use
  Company Number: None

PATIENT
  Age: 55 Year
  Sex: Female
  Weight: 50.8 kg

DRUGS (1)
  1. MOVIPREP [Suspect]

REACTIONS (5)
  - Emotional distress [None]
  - Bladder pain [None]
  - Gastrointestinal pain [None]
  - Urine abnormality [None]
  - Abnormal faeces [None]
